FAERS Safety Report 10420671 (Version 1)
Quarter: 2014Q3

REPORT INFORMATION
  Report Type: Spontaneous
  Country: US (occurrence: None)
  Receive Date: 20140707
  Receipt Date: 20140707
  Transmission Date: 20150326
  Serious: Yes (Hospitalization)
  Sender: FDA-Public Use
  Company Number: 3004421212-2014-00005

PATIENT
  Age: 22 Year

DRUGS (1)
  1. CONZIP [Suspect]
     Active Substance: TRAMADOL HYDROCHLORIDE
     Indication: PRODUCT USED FOR UNKNOWN INDICATION
     Dates: start: 201204, end: 201404

REACTIONS (1)
  - Convulsion [None]

NARRATIVE: CASE EVENT DATE: 20140411
